FAERS Safety Report 19596600 (Version 2)
Quarter: 2021Q3

REPORT INFORMATION
  Report Type: Spontaneous
  Country: DE (occurrence: DE)
  Receive Date: 20210722
  Receipt Date: 20210803
  Transmission Date: 20211014
  Serious: Yes (Other)
  Sender: FDA-Public Use
  Company Number: DE-CELGENEUS-DEU-20210702937

PATIENT
  Age: 70 Year
  Sex: Female

DRUGS (3)
  1. SODIUM CHLORIDE. [Suspect]
     Active Substance: SODIUM CHLORIDE
     Route: 065
  2. SODIUM CHLORIDE. [Suspect]
     Active Substance: SODIUM CHLORIDE
     Indication: PRODUCT USED FOR UNKNOWN INDICATION
     Route: 065
  3. ABRAXANE [Suspect]
     Active Substance: PACLITAXEL
     Indication: BREAST CANCER
     Route: 041
     Dates: start: 20210706

REACTIONS (15)
  - Skin exfoliation [Unknown]
  - Myocardial infarction [Unknown]
  - Dizziness [Unknown]
  - Pyrexia [Unknown]
  - Bile output abnormal [Unknown]
  - Eye pain [Unknown]
  - Mucosal disorder [Unknown]
  - Nasal oedema [Unknown]
  - Pharyngitis [Unknown]
  - Migraine [Unknown]
  - Nausea [Unknown]
  - Paraesthesia [Unknown]
  - Musculoskeletal pain [Unknown]
  - Vomiting [Unknown]
  - Chills [Unknown]

NARRATIVE: CASE EVENT DATE: 20210706
